FAERS Safety Report 8171602-4 (Version None)
Quarter: 2012Q1

REPORT INFORMATION
  Report Type: 
  Country: None (occurrence: None)
  Receive Date: 20120228
  Receipt Date: 20120206
  Transmission Date: 20120608
  Serious: No
  Sender: FDA-Public Use
  Company Number: US-ROXANE LABORATORIES, INC.-2012-RO-00626RO

PATIENT
  Sex: Male

DRUGS (1)
  1. METHADONE HCL [Suspect]

REACTIONS (1)
  - VOMITING [None]
